FAERS Safety Report 5232525-3 (Version None)
Quarter: 2007Q1

REPORT INFORMATION
  Report Type: 
  Country: None (occurrence: None)
  Receive Date: 20070207
  Receipt Date: 20070202
  Transmission Date: 20070707
  Serious: Yes (Hospitalization)
  Sender: FDA-Public Use
  Company Number: US-GLAXOSMITHKLINE-A0638162A

PATIENT
  Age: 8 Year
  Sex: Female

DRUGS (3)
  1. ZOFRAN [Suspect]
     Dosage: 4MG AS REQUIRED
     Route: 042
     Dates: start: 20070118, end: 20070118
  2. LORTAB [Concomitant]
  3. DECADRON [Concomitant]

REACTIONS (3)
  - CONVULSION [None]
  - DYSKINESIA [None]
  - DYSTONIA [None]
